FAERS Safety Report 4486936-4 (Version None)
Quarter: 2004Q4

REPORT INFORMATION
  Report Type: 
  Country: None (occurrence: None)
  Receive Date: 20041027
  Receipt Date: 20041007
  Transmission Date: 20050328
  Serious: Yes (Hospitalization)
  Sender: FDA-Public Use
  Company Number: PHNU2004DE03453

PATIENT
  Age: 79 Year
  Sex: Male
  Weight: 90 kg

DRUGS (7)
  1. LOCOL [Suspect]
     Dosage: 80 MG, QD
     Dates: start: 19980601
  2. ACETYLSALICYLIC ACID [Concomitant]
     Indication: CORONARY ARTERY DISEASE
     Dosage: 100 MG, QD
     Dates: start: 19980601
  3. DILATREND [Concomitant]
     Indication: CORONARY ARTERY DISEASE
  4. ATACAND [Concomitant]
     Indication: AORTIC BYPASS
     Dosage: .5 DF, QD
     Dates: start: 19980601
  5. HUMALOG [Concomitant]
     Indication: DIABETES MELLITUS
  6. LANTUS [Concomitant]
     Indication: DIABETES MELLITUS
  7. VOLTAREN RESINAT ^NOVARTIS^ [Concomitant]
     Indication: ARTHRALGIA
     Dosage: 1 DF, BID

REACTIONS (3)
  - ARTHRALGIA [None]
  - BLOOD CREATINE PHOSPHOKINASE INCREASED [None]
  - CORONARY ARTERY DISEASE [None]
